FAERS Safety Report 12146456 (Version 1)
Quarter: 2016Q1

REPORT INFORMATION
  Report Type: Spontaneous
  Country: US (occurrence: US)
  Receive Date: 20160304
  Receipt Date: 20160304
  Transmission Date: 20160526
  Serious: No
  Sender: FDA-Public Use
  Company Number: US-INDIVIOR LIMITED-INDV-085025-2015

PATIENT
  Age: 51 Year
  Sex: Female

DRUGS (3)
  1. SUBOXONE [Suspect]
     Active Substance: BUPRENORPHINE HYDROCHLORIDE\NALOXONE HYDROCHLORIDE
     Indication: PAIN
     Dosage: 2MG UP TO 12 TIMES DAILY FOR ABOUT 1.5 YEARS
     Route: 060
     Dates: start: 2008, end: 2010
  2. SUBUTEX [Suspect]
     Active Substance: BUPRENORPHINE HYDROCHLORIDE
     Indication: PAIN
     Dosage: 2MG UP TO 12 TIMES DAILY FOR ABOUT 1.5 YEARS
     Route: 060
     Dates: start: 2010, end: 201109
  3. BUPRENORPHINE GENERIC TAB [Suspect]
     Active Substance: BUPRENORPHINE
     Indication: PAIN
     Dosage: 2MG UP TO 12 TIMES DAILY FOR 2 YEARS AND 8 MONTHS
     Route: 060
     Dates: start: 201109, end: 201405

REACTIONS (4)
  - Myoclonus [Recovered/Resolved]
  - Hypersensitivity [Recovered/Resolved]
  - Product use issue [Recovered/Resolved]
  - Off label use [Recovered/Resolved]

NARRATIVE: CASE EVENT DATE: 2008
